FAERS Safety Report 8762381 (Version 2)
Quarter: 2012Q4

REPORT INFORMATION
  Report Type: 
  Country: US (occurrence: US)
  Receive Date: 20120830
  Receipt Date: 20121015
  Transmission Date: 20130627
  Serious: Yes (Other)
  Sender: FDA-Public Use
  Company Number: US-PFIZER INC-2012212204

PATIENT
  Sex: Male

DRUGS (1)
  1. NICOTROL INHALER [Suspect]
     Indication: SMOKING CESSATION THERAPY
     Dosage: UNK
     Route: 055
     Dates: end: 201208

REACTIONS (2)
  - Oropharyngeal candidiasis [Unknown]
  - Tongue discolouration [Not Recovered/Not Resolved]
